FAERS Safety Report 20853651 (Version 1)
Quarter: 2022Q2

REPORT INFORMATION
  Report Type: Spontaneous
  Country: US (occurrence: US)
  Receive Date: 20220520
  Receipt Date: 20220520
  Transmission Date: 20220721
  Serious: Yes (Other)
  Sender: FDA-Public Use
  Company Number: US-MYLANLABS-2022M1037112

PATIENT
  Age: 14 Year
  Sex: Male
  Weight: 66 kg

DRUGS (4)
  1. METHOTREXATE [Suspect]
     Active Substance: METHOTREXATE
     Indication: Dermatitis atopic
     Dosage: 17.5 MILLIGRAM, QW
     Route: 048
  2. TRIAMCINOLONE [Suspect]
     Active Substance: TRIAMCINOLONE
     Indication: Dermatitis atopic
     Dosage: UNK UNK, BID, FOR A FEW WEEKS
     Route: 061
  3. PREDNISONE [Suspect]
     Active Substance: PREDNISONE
     Indication: Dermatitis atopic
     Dosage: 40 MILLIGRAM, QD (15-DAY ORAL TAPER STARTING AT 40 MG DAILY)
     Route: 048
  4. FLUOCINONIDE [Suspect]
     Active Substance: FLUOCINONIDE
     Indication: Dermatitis atopic
     Dosage: UNK, BID, ~FOR A FEW WEEKS
     Route: 061

REACTIONS (2)
  - Treatment failure [Unknown]
  - Off label use [Unknown]
